FAERS Safety Report 19958630 (Version 1)
Quarter: 2021Q4

REPORT INFORMATION
  Report Type: Spontaneous
  Country: DE (occurrence: DE)
  Receive Date: 20211015
  Receipt Date: 20211015
  Transmission Date: 20220304
  Serious: Yes (Hospitalization)
  Sender: FDA-Public Use
  Company Number: DE-IGSA-BIG0016106

PATIENT
  Age: 57 Year
  Sex: Male
  Weight: 107 kg

DRUGS (3)
  1. GAMUNEX [Suspect]
     Active Substance: HUMAN IMMUNOGLOBULIN G
     Indication: Chronic inflammatory demyelinating polyradiculoneuropathy
     Dosage: 35 GRAM, QD
     Route: 042
     Dates: start: 20210727, end: 20210729
  2. GAMUNEX [Suspect]
     Active Substance: HUMAN IMMUNOGLOBULIN G
     Dosage: 35 GRAM, QD
     Route: 042
     Dates: start: 20210824, end: 20210826
  3. GAMUNEX [Suspect]
     Active Substance: HUMAN IMMUNOGLOBULIN G
     Dosage: UNK
     Dates: start: 202107, end: 202107

REACTIONS (7)
  - Pyrexia [Recovering/Resolving]
  - Chills [Recovering/Resolving]
  - Mucosal inflammation [Recovering/Resolving]
  - C-reactive protein increased [Recovering/Resolving]
  - Splenomegaly [Recovering/Resolving]
  - Acute kidney injury [Recovering/Resolving]
  - Aphthous ulcer [Recovering/Resolving]

NARRATIVE: CASE EVENT DATE: 20210101
